FAERS Safety Report 6998960-8 (Version None)
Quarter: 2010Q3

REPORT INFORMATION
  Report Type: 
  Country: None (occurrence: None)
  Receive Date: 20100920
  Receipt Date: 20100305
  Transmission Date: 20110219
  Serious: No
  Sender: FDA-Public Use
  Company Number: US-ASTRAZENECA-2010SE09759

PATIENT
  Age: 24103 Day
  Sex: Male
  Weight: 104.3 kg

DRUGS (4)
  1. SEROQUEL [Suspect]
     Indication: BIPOLAR DISORDER
     Route: 048
     Dates: start: 20091101, end: 20100221
  2. SEROQUEL [Suspect]
     Route: 048
     Dates: start: 20100222
  3. LISINOPRIL [Concomitant]
  4. FLOMAX [Concomitant]

REACTIONS (5)
  - BLOOD GLUCOSE DECREASED [None]
  - BLOOD PRESSURE INCREASED [None]
  - DIZZINESS [None]
  - FEELING COLD [None]
  - SKIN DISCOLOURATION [None]
